FAERS Safety Report 5753883-7 (Version None)
Quarter: 2008Q2

REPORT INFORMATION
  Report Type: 
  Country: None (occurrence: None)
  Receive Date: 20080530
  Receipt Date: 20080522
  Transmission Date: 20081010
  Serious: Yes (Other)
  Sender: FDA-Public Use
  Company Number: B0360737A

PATIENT
  Sex: Male

DRUGS (5)
  1. PAROXETINE HCL [Suspect]
     Indication: FACIAL PAIN
     Route: 065
     Dates: start: 19990802, end: 20010101
  2. SERTRALINE [Concomitant]
     Dates: start: 19990101
  3. CITALOPRAM HYDROBROMIDE [Concomitant]
     Dates: start: 20021101
  4. PROPRANOLOL [Concomitant]
     Indication: ANXIETY
     Dates: start: 20060901
  5. DIAZEPAM [Concomitant]
     Dates: start: 20070601

REACTIONS (12)
  - AFFECTIVE DISORDER [None]
  - ANXIETY [None]
  - DEPRESSED MOOD [None]
  - DIZZINESS [None]
  - DRUG WITHDRAWAL SYNDROME [None]
  - EAR DISORDER [None]
  - FATIGUE [None]
  - ILL-DEFINED DISORDER [None]
  - LOSS OF LIBIDO [None]
  - MOOD SWINGS [None]
  - NAUSEA [None]
  - SUICIDAL IDEATION [None]
